FAERS Safety Report 7313515-3 (Version None)
Quarter: 2011Q1

REPORT INFORMATION
  Report Type: 
  Country: None (occurrence: None)
  Receive Date: 20110225
  Receipt Date: 20100202
  Transmission Date: 20110831
  Serious: No
  Sender: FDA-Public Use
  Company Number: US-MYLANLABS-2010S1001843

PATIENT
  Age: 53 Year
  Sex: Male
  Weight: 104.33 kg

DRUGS (8)
  1. SIMVASTATIN [Suspect]
     Indication: BLOOD CHOLESTEROL INCREASED
     Route: 048
  2. METFORMIN HCL [Suspect]
     Indication: DIABETES MELLITUS
     Route: 048
     Dates: end: 20090101
  3. METFORMIN HCL EXTENDED-RELEASE TABLETS [Concomitant]
     Indication: DIABETES MELLITUS
     Dates: start: 20090101
  4. ACTOS [Suspect]
     Route: 048
     Dates: start: 20090101
  5. ACTOS [Suspect]
     Indication: DIABETES MELLITUS
     Route: 048
     Dates: start: 20090101, end: 20090101
  6. GLIPIZIDE [Concomitant]
     Indication: DIABETES MELLITUS
     Route: 048
  7. ACTOS [Suspect]
     Route: 048
     Dates: start: 20090401, end: 20090101
  8. LASIX [Concomitant]
     Indication: FLUID RETENTION
     Route: 048

REACTIONS (6)
  - NASOPHARYNGITIS [None]
  - OEDEMA PERIPHERAL [None]
  - ALANINE AMINOTRANSFERASE INCREASED [None]
  - GINGIVAL DISORDER [None]
  - MUSCLE SPASMS [None]
  - DRUG INEFFECTIVE [None]
